FAERS Safety Report 21040053 (Version 1)
Quarter: 2022Q3

REPORT INFORMATION
  Report Type: Spontaneous
  Country: US (occurrence: US)
  Receive Date: 20220704
  Receipt Date: 20220704
  Transmission Date: 20221027
  Serious: Yes (Hospitalization, Other)
  Sender: FDA-Public Use
  Company Number: US-BRISTOL-MYERS SQUIBB COMPANY-2022-061437

PATIENT
  Age: 68 Year
  Sex: Female

DRUGS (1)
  1. POMALYST [Suspect]
     Active Substance: POMALIDOMIDE
     Indication: Product used for unknown indication
     Dosage: FREQUENCY: DAILY.
     Route: 048
     Dates: start: 20191121

REACTIONS (3)
  - Urinary tract infection [Unknown]
  - Atrial fibrillation [Unknown]
  - Intracranial aneurysm [Unknown]

NARRATIVE: CASE EVENT DATE: 20220620
